FAERS Safety Report 26102269 (Version 1)
Quarter: 2025Q4

REPORT INFORMATION
  Report Type: Spontaneous
  Country: US (occurrence: US)
  Receive Date: 20251128
  Receipt Date: 20251128
  Transmission Date: 20260118
  Serious: No
  Sender: BIOVITRUM
  Company Number: US-BIOVITRUM-2025-US-016162

PATIENT
  Age: 76 Year
  Sex: Male

DRUGS (2)
  1. VONJO [Suspect]
     Active Substance: PACRITINIB
     Indication: Chronic lymphocytic leukaemia
     Dosage: TWICE DAILY
     Route: 048
     Dates: start: 20250516
  2. BRUKINSA [Concomitant]
     Active Substance: ZANUBRUTINIB
     Indication: Product used for unknown indication

REACTIONS (3)
  - Contusion [Unknown]
  - Blood iron decreased [Unknown]
  - Post procedural haemorrhage [Unknown]
